FAERS Safety Report 4328110-8 (Version None)
Quarter: 2004Q1

REPORT INFORMATION
  Report Type: 
  Country: None (occurrence: None)
  Receive Date: 20040325
  Receipt Date: 20040310
  Transmission Date: 20041129
  Serious: Yes (Death, Hospitalization)
  Sender: FDA-Public Use
  Company Number: 180355

PATIENT
  Age: 49 Year
  Sex: Female
  Weight: 72.5755 kg

DRUGS (1)
  1. AVONEX [Suspect]
     Indication: MULTIPLE SCLEROSIS
     Dosage: 30 MCG QW IM
     Route: 030
     Dates: start: 19990413, end: 20030901

REACTIONS (8)
  - ANAEMIA [None]
  - ANOREXIA [None]
  - LARGE CELL LUNG CANCER STAGE IV [None]
  - LUNG NEOPLASM MALIGNANT [None]
  - METASTASES TO LYMPH NODES [None]
  - PNEUMONIA BACTERIAL [None]
  - URINARY INCONTINENCE [None]
  - URINARY TRACT INFECTION [None]
